FAERS Safety Report 9826855 (Version 1)
Quarter: 2013Q4

REPORT INFORMATION
  Report Type: Spontaneous
  Country: GB (occurrence: None)
  Receive Date: 20131112
  Receipt Date: 20131112
  Transmission Date: 20140711
  Serious: Yes (Other)
  Sender: FDA-Public Use
  Company Number: E2B_00000814

PATIENT
  Age: 64 Year
  Sex: Male
  Weight: 161.7 kg

DRUGS (13)
  1. LISINOPRIL [Suspect]
     Indication: PRODUCT USED FOR UNKNOWN INDICATION
     Dosage: UNKNOWN (UNKNOWN, UNKNOWN), UNKNKOWN
     Dates: start: 20130418
  2. FUROSEMIDE (UNKNOWN) [Concomitant]
  3. INSULIN ASPART (NOVOMIX) (UNKNOWN) [Concomitant]
  4. IRBESARTAN (UNKNOWN) [Concomitant]
  5. METFORMIN (UNKNOWN) [Concomitant]
  6. SIMVASTATIN (UNKNOWN) (SIMVASTATIN) UNK, UNKUNK [Concomitant]
  7. AMITRIPTYLINE HYDROCHLORIDE (UNKNOWN) [Concomitant]
  8. ASPIRIN (UNKNOWN) [Concomitant]
  9. UREA + LAUROMACROGOLS (E45 ITCH RELIEF) (UNKNOWN) [Concomitant]
  10. LINAGLIPTIN (UNKNOWN) [Concomitant]
  11. DOXAZOSIN (UNKNOWN) [Concomitant]
  12. TRAMADOL (UNKNOWN) [Concomitant]
  13. LIRAGLUTIDE (UNKNOWN) [Concomitant]

REACTIONS (1)
  - Pancreatitis [None]
